FAERS Safety Report 23217612 (Version 1)
Quarter: 2023Q4

REPORT INFORMATION
  Report Type: Spontaneous
  Country: US (occurrence: US)
  Receive Date: 20231122
  Receipt Date: 20231122
  Transmission Date: 20240110
  Serious: Yes (Disabling, Other)
  Sender: FDA-Public Use
  Company Number: US-PFIZER INC-PV202300187112

PATIENT
  Sex: Female

DRUGS (2)
  1. CABERGOLINE [Suspect]
     Active Substance: CABERGOLINE
     Indication: Pituitary tumour benign
     Dosage: 0.25 MG, 2X/WEEK
  2. CABERGOLINE [Suspect]
     Active Substance: CABERGOLINE
     Dosage: UNK (ON AND OFF)

REACTIONS (1)
  - Hemianopia [Recovering/Resolving]
